FAERS Safety Report 7535160-7 (Version None)
Quarter: 2011Q2

REPORT INFORMATION
  Report Type: 
  Country: None (occurrence: None)
  Receive Date: 20110609
  Receipt Date: 20090302
  Transmission Date: 20111010
  Serious: Yes (Death, Other)
  Sender: FDA-Public Use
  Company Number: PHHY2009AU07779

PATIENT
  Weight: 65 kg

DRUGS (1)
  1. EXJADE [Suspect]

REACTIONS (2)
  - WHITE BLOOD CELL COUNT INCREASED [None]
  - DEATH [None]
